FAERS Safety Report 8100171 (Version 6)
Quarter: 2013Q3

REPORT INFORMATION
  Report Type: Spontaneous
  Country: US (occurrence: US)
  Receive Date: 20110822
  Receipt Date: 20130822
  Transmission Date: 20140515
  Serious: Yes (Hospitalization)
  Sender: FDA-Public Use
  Company Number: US-GLAXOSMITHKLINE-A0915692A

PATIENT
  Age: 55 Year
  Sex: Male
  Weight: 118.2 kg

DRUGS (7)
  1. AVANDIA [Suspect]
     Indication: DIABETES MELLITUS
     Route: 048
  2. AVANDARYL [Suspect]
     Indication: DIABETES MELLITUS
     Route: 048
     Dates: start: 200609, end: 201007
  3. FLOMAX [Concomitant]
  4. METFORMIN [Concomitant]
  5. CYMBALTA [Concomitant]
  6. PROVIGIL [Concomitant]
  7. OXYCONTIN [Concomitant]

REACTIONS (6)
  - Renal failure acute [Unknown]
  - Renal failure chronic [Unknown]
  - Coronary artery disease [Unknown]
  - Hyperlipidaemia [Unknown]
  - Hypertension [Unknown]
  - Pulmonary hypertension [Unknown]
